FAERS Safety Report 7055115-9 (Version None)
Quarter: 2010Q4

REPORT INFORMATION
  Report Type: 
  Country: None (occurrence: None)
  Receive Date: 20101019
  Receipt Date: 20101019
  Transmission Date: 20110411
  Serious: Yes (Other)
  Sender: FDA-Public Use
  Company Number: None

PATIENT
  Age: 60 Year
  Sex: Male
  Weight: 72.5755 kg

DRUGS (2)
  1. LANTUS [Suspect]
     Indication: TYPE 2 DIABETES MELLITUS
     Dosage: LANTUS: 30 SYRINGE UNITS 2X A DAY SQ
     Route: 058
     Dates: start: 20090801, end: 20101018
  2. HUMULIN R [Suspect]
     Dosage: HUMULIN R: 25 2X A DAY SQ
     Route: 057

REACTIONS (5)
  - DERMATITIS ATOPIC [None]
  - ECZEMA [None]
  - NO THERAPEUTIC RESPONSE [None]
  - PSORIASIS [None]
  - RASH GENERALISED [None]
